FAERS Safety Report 19782282 (Version 1)
Quarter: 2021Q3

REPORT INFORMATION
  Report Type: Spontaneous
  Country: US (occurrence: US)
  Receive Date: 20210902
  Receipt Date: 20210902
  Transmission Date: 20211014
  Serious: No
  Sender: FDA-Public Use
  Company Number: US-ENDO PHARMACEUTICALS INC-2021-002686

PATIENT
  Age: 47 Year
  Sex: Female

DRUGS (1)
  1. PREDNISONE. [Suspect]
     Active Substance: PREDNISONE
     Indication: DRUG HYPERSENSITIVITY
     Dosage: UNK UNKNOWN, UNKNOWN
     Route: 065

REACTIONS (6)
  - Swelling face [Unknown]
  - Swelling [Unknown]
  - Pharyngeal swelling [Unknown]
  - Lip swelling [Unknown]
  - Eye swelling [Unknown]
  - Headache [Unknown]

NARRATIVE: CASE EVENT DATE: 202104
